FAERS Safety Report 17739605 (Version 1)
Quarter: 2020Q2

REPORT INFORMATION
  Report Type: Spontaneous
  Country: US (occurrence: US)
  Receive Date: 20200501
  Receipt Date: 20200501
  Transmission Date: 20200714
  Serious: No
  Sender: FDA-Public Use
  Company Number: None

PATIENT
  Age: 64 Year
  Sex: Female

DRUGS (1)
  1. SPRYCEL [Suspect]
     Active Substance: DASATINIB
     Indication: CHRONIC MYELOID LEUKAEMIA
     Route: 048
     Dates: start: 202002, end: 20200501

REACTIONS (3)
  - Red blood cell count decreased [None]
  - Platelet count decreased [None]
  - White blood cell count decreased [None]

NARRATIVE: CASE EVENT DATE: 20200317
